FAERS Safety Report 7544550-8 (Version None)
Quarter: 2011Q2

REPORT INFORMATION
  Report Type: 
  Country: None (occurrence: None)
  Receive Date: 20110613
  Receipt Date: 20110608
  Transmission Date: 20111010
  Serious: Yes (Life-Threatening, Hospitalization)
  Sender: FDA-Public Use
  Company Number: US-ELI_LILLY_AND_COMPANY-US200903002753

PATIENT
  Sex: Male

DRUGS (13)
  1. METFORMIN HCL [Concomitant]
     Indication: DIABETES MELLITUS
     Dosage: 500 MG, 2/D
     Route: 048
  2. BYETTA [Suspect]
     Dosage: UNK, UNKNOWN
     Route: 065
     Dates: start: 20061004, end: 20070508
  3. LIPITOR [Concomitant]
     Indication: BLOOD CHOLESTEROL INCREASED
     Dosage: 20 MG, EACH EVENING
     Route: 048
  4. CELEBREX [Concomitant]
     Indication: PAIN
  5. LISINOPRIL [Concomitant]
     Indication: BLOOD PRESSURE INCREASED
     Dosage: 10 MG, DAILY (1/D)
     Route: 048
  6. ALLOPURINOL [Concomitant]
     Indication: GOUT
     Dosage: 300 MG, DAILY (1/D)
     Route: 048
  7. UROCIT-K [Concomitant]
     Indication: NEPHROLITHIASIS
  8. GLIPIZIDE [Concomitant]
     Indication: DIABETES MELLITUS
     Dosage: 5 MG, DAILY (1/D)
     Route: 048
  9. EFFEXOR [Concomitant]
     Indication: DEPRESSION
     Dosage: 75 MG, DAILY (1/D)
     Route: 048
  10. POTASSIUM CHLORIDE [Concomitant]
     Indication: SUPPLEMENTATION THERAPY
     Dosage: 10 MEQ, 2/D
     Route: 048
  11. INSULIN [Concomitant]
  12. ASPIRIN [Concomitant]
     Indication: PAIN
     Dosage: 81 MG, DAILY (1/D)
     Route: 048
  13. DOXYCYCLINE [Concomitant]
     Indication: INFECTION

REACTIONS (9)
  - OFF LABEL USE [None]
  - RENAL FAILURE ACUTE [None]
  - DYSPHAGIA [None]
  - COUGH [None]
  - RESPIRATORY FAILURE [None]
  - MULTI-ORGAN FAILURE [None]
  - PLEURAL EFFUSION [None]
  - SEPSIS [None]
  - PANCREATITIS [None]
